FAERS Safety Report 6656171-X (Version None)
Quarter: 2010Q1

REPORT INFORMATION
  Report Type: 
  Country: None (occurrence: None)
  Receive Date: 20100326
  Receipt Date: 20100326
  Transmission Date: 20100710
  Serious: Yes (Other)
  Sender: FDA-Public Use
  Company Number: None

PATIENT
  Sex: Male
  Weight: 82.11 kg

DRUGS (1)
  1. CIPROFLOXACIN [Suspect]
     Indication: DIVERTICULUM
     Dosage: 400 MG Q12 HOURS IV DRIP
     Route: 041
     Dates: start: 20100323, end: 20100323

REACTIONS (1)
  - LIVER FUNCTION TEST ABNORMAL [None]
